FAERS Safety Report 5452130-3 (Version None)
Quarter: 2007Q3

REPORT INFORMATION
  Report Type: 
  Country: None (occurrence: None)
  Receive Date: 20070912
  Receipt Date: 20061123
  Transmission Date: 20080115
  Serious: Yes (Other)
  Sender: FDA-Public Use
  Company Number: 2006VX002423

PATIENT
  Age: 75 Year
  Sex: Male

DRUGS (1)
  1. EFUDEX [Suspect]
     Indication: BOWEN'S DISEASE
     Dosage: BID; TOP
     Route: 061
     Dates: start: 20041101

REACTIONS (6)
  - ERYTHEMA [None]
  - ESCHAR [None]
  - PAIN OF SKIN [None]
  - SCAR [None]
  - SKIN INFLAMMATION [None]
  - SKIN ULCER [None]
